FAERS Safety Report 20167790 (Version 2)
Quarter: 2021Q4

REPORT INFORMATION
  Report Type: Spontaneous
  Country: US (occurrence: US)
  Receive Date: 20211210
  Receipt Date: 20211216
  Transmission Date: 20220303
  Serious: Yes (Hospitalization, Other)
  Sender: FDA-Public Use
  Company Number: US-MLMSERVICE-20211125-3236371-1

PATIENT
  Age: 79 Year
  Sex: Female

DRUGS (3)
  1. DEXAMETHASONE [Suspect]
     Active Substance: DEXAMETHASONE
     Indication: COVID-19
     Dosage: 20 MILLIGRAM, TWO TIMES A DAY
     Route: 065
  2. REMDESIVIR [Concomitant]
     Active Substance: REMDESIVIR
     Indication: COVID-19
     Dosage: UNK
     Route: 065
  3. OXYGEN [Concomitant]
     Active Substance: OXYGEN
     Indication: COVID-19
     Dosage: UNK
     Route: 065

REACTIONS (7)
  - Hepatic amoebiasis [Recovering/Resolving]
  - Infection reactivation [Recovering/Resolving]
  - Amoebiasis [Recovering/Resolving]
  - Amoebic colitis [Recovering/Resolving]
  - Melaena [Recovering/Resolving]
  - Hypotension [Recovering/Resolving]
  - Off label use [Unknown]
